FAERS Safety Report 11752144 (Version 1)
Quarter: 2015Q4

REPORT INFORMATION
  Report Type: Report from Study
  Country: US (occurrence: US)
  Receive Date: 20151118
  Receipt Date: 20151118
  Transmission Date: 20160304
  Serious: Yes (Hospitalization)
  Sender: FDA-Public Use
  Company Number: US-ACTELION-A-US2015-127319

PATIENT
  Age: 84 Year
  Sex: Female

DRUGS (1)
  1. TRACLEER [Suspect]
     Active Substance: BOSENTAN
     Indication: PULMONARY ARTERIAL HYPERTENSION
     Dosage: UNK
     Route: 048
     Dates: start: 200412

REACTIONS (4)
  - Diarrhoea haemorrhagic [Recovered/Resolved]
  - Transfusion [Recovered/Resolved]
  - Gastric ulcer [Recovered/Resolved]
  - Gastric ulcer surgery [Recovered/Resolved]

NARRATIVE: CASE EVENT DATE: 20151031
